FAERS Safety Report 17368762 (Version 7)
Quarter: 2020Q2

REPORT INFORMATION
  Report Type: Report from Study
  Country: US (occurrence: US)
  Receive Date: 20200204
  Receipt Date: 20200603
  Transmission Date: 20200713
  Serious: Yes (Hospitalization)
  Sender: FDA-Public Use
  Company Number: US-ACTELION-A-NJ2020-201192

PATIENT
  Sex: Female
  Weight: 190.48 kg

DRUGS (6)
  1. UPTRAVI [Suspect]
     Active Substance: SELEXIPAG
     Dosage: 200 MCG, QD
     Route: 048
  2. UPTRAVI [Suspect]
     Active Substance: SELEXIPAG
     Dosage: 200 MCG, BID
     Route: 048
  3. UPTRAVI [Suspect]
     Active Substance: SELEXIPAG
     Dosage: 400 MCG, BID
     Route: 048
  4. OPSUMIT [Suspect]
     Active Substance: MACITENTAN
     Indication: PULMONARY ARTERIAL HYPERTENSION
     Dosage: 10 MG, QD
     Route: 048
  5. UPTRAVI [Suspect]
     Active Substance: SELEXIPAG
     Indication: PULMONARY ARTERIAL HYPERTENSION
     Dosage: 800 MCG, BID
     Route: 048
     Dates: end: 20200225
  6. UPTRAVI [Suspect]
     Active Substance: SELEXIPAG
     Dosage: 600 MCG, BID
     Route: 048

REACTIONS (13)
  - Cardiac failure [Unknown]
  - Viral infection [Unknown]
  - Condition aggravated [Unknown]
  - Dehydration [Unknown]
  - Headache [Unknown]
  - Fatigue [Unknown]
  - Abdominal pain upper [Unknown]
  - Pain in extremity [Unknown]
  - Insomnia [Unknown]
  - Pulmonary arterial hypertension [Unknown]
  - Malnutrition [Unknown]
  - Dyspnoea [Unknown]
  - Gastrointestinal disorder [Unknown]
